FAERS Safety Report 10952768 (Version 1)
Quarter: 2015Q1

REPORT INFORMATION
  Report Type: Spontaneous
  Country: US (occurrence: None)
  Receive Date: 20150323
  Receipt Date: 20150323
  Transmission Date: 20150721
  Serious: No
  Sender: FDA-Public Use
  Company Number: VIT-2015-00041

PATIENT
  Age: 64 Year
  Sex: Male
  Weight: 101 kg

DRUGS (4)
  1. AMLODIPINE [Concomitant]
     Active Substance: AMLODIPINE BESYLATE
  2. FUROSEMIDE. [Concomitant]
     Active Substance: FUROSEMIDE
  3. DIALYVITE (ASCORBIC ACID) [Concomitant]
  4. VELPHORO [Suspect]
     Active Substance: FERRIC OXYHYDROXIDE
     Indication: HYPERPHOSPHATAEMIA
     Route: 048
     Dates: start: 201411, end: 201412

REACTIONS (1)
  - Diarrhoea [None]

NARRATIVE: CASE EVENT DATE: 201411
